FAERS Safety Report 6575669-6 (Version None)
Quarter: 2010Q1

REPORT INFORMATION
  Report Type: 
  Country: None (occurrence: None)
  Receive Date: 20100209
  Receipt Date: 20090209
  Transmission Date: 20100710
  Serious: Yes (Life-Threatening, Hospitalization, Disabling)
  Sender: FDA-Public Use
  Company Number: HU-MERCK-0902HUN00008

PATIENT
  Age: 66 Year
  Sex: Male

DRUGS (9)
  1. ZOCOR [Suspect]
     Indication: HYPERCHOLESTEROLAEMIA
     Route: 065
  2. GLICLAZIDE [Concomitant]
     Route: 065
  3. METFORMIN [Concomitant]
     Route: 065
  4. AMLODIPINE [Suspect]
     Route: 065
  5. TOLPERISONE [Concomitant]
     Route: 065
  6. NIFLUMIC ACID [Concomitant]
     Route: 065
  7. ASPIRIN [Concomitant]
     Route: 065
  8. VALERIAN [Concomitant]
     Route: 065
  9. ALPRAZOLAM [Suspect]
     Route: 065

REACTIONS (4)
  - DECUBITUS ULCER [None]
  - LEFT VENTRICULAR FAILURE [None]
  - RENAL FAILURE ACUTE [None]
  - RHABDOMYOLYSIS [None]
